FAERS Safety Report 5161373-8 (Version None)
Quarter: 2006Q4

REPORT INFORMATION
  Report Type: 
  Country: None (occurrence: None)
  Receive Date: 20061121
  Receipt Date: 20061108
  Transmission Date: 20070319
  Serious: Yes (Other)
  Sender: FDA-Public Use
  Company Number: 2006141067

PATIENT
  Age: 54 Year
  Sex: Female

DRUGS (16)
  1. LYRICA [Suspect]
     Indication: GROIN PAIN
     Dosage: 75 MG (75 MG, 1 IN 1 D), ORAL
     Route: 048
     Dates: start: 20060919, end: 20060901
  2. ZOLOFT [Concomitant]
  3. DOMEPERIDONE             (DOMPERIDONE) [Concomitant]
  4. ZANTAC [Concomitant]
  5. PREVACID [Concomitant]
  6. CLONAZEPAM [Concomitant]
  7. OGEN [Concomitant]
  8. COZAAR [Concomitant]
  9. HYDRODIURIL [Concomitant]
  10. SYNTHROID [Concomitant]
  11. ADVAIR DISKUS 100/50 [Concomitant]
  12. SALBUTAMOL (SALBUTAMOL) [Concomitant]
  13. MS CONTIN [Concomitant]
  14. EXTRA STRENGTH TYLENOL [Concomitant]
  15. SENOKOT [Concomitant]
  16. COLACE (DOCUSATE SODIUM) [Concomitant]

REACTIONS (8)
  - DEPRESSED LEVEL OF CONSCIOUSNESS [None]
  - DISORIENTATION [None]
  - FEELING ABNORMAL [None]
  - HEADACHE [None]
  - HYPOAESTHESIA [None]
  - LOSS OF CONTROL OF LEGS [None]
  - PARAESTHESIA [None]
  - SPEECH DISORDER [None]
